FAERS Safety Report 8785539 (Version 1)
Quarter: 2012Q4

REPORT INFORMATION
  Report Type: 
  Country: US (occurrence: US)
  Receive Date: 20120914
  Receipt Date: 20120914
  Transmission Date: 20130627
  Serious: No
  Sender: FDA-Public Use
  Company Number: US-PFIZER INC-2012227264

PATIENT
  Age: 68 Year
  Sex: Female
  Weight: 118 kg

DRUGS (19)
  1. ALAVERT [Suspect]
     Indication: HYPERSENSITIVITY
     Dosage: 10 mg,daily
     Dates: start: 2012
  2. EXCEDRIN (ASPIRIN/CAFFEINE/PARACETAMOL) [Suspect]
     Indication: HEADACHE
     Dosage: UNK, as needed
  3. TYLENOL [Suspect]
     Indication: HEADACHE
     Dosage: UNK, as needed
  4. ASPIRIN [Suspect]
     Indication: HEADACHE
     Dosage: UNK, as needed
  5. SYNTHROID [Concomitant]
     Dosage: 1.75 mg,daily
  6. VITAMIN D [Concomitant]
     Indication: ROUTINE HEALTH MAINTENANCE
     Dosage: 0.25, 3x/day
  7. VITAMIN D [Concomitant]
     Indication: ASTHENIA
  8. CALCIUM [Concomitant]
     Indication: ROUTINE HEALTH MAINTENANCE
     Dosage: UNK, 3x/day
  9. CALCIUM [Concomitant]
     Indication: ASTHENIA
  10. MAGNESIUM [Concomitant]
     Indication: ROUTINE HEALTH MAINTENANCE
     Dosage: UNK, 2x/day
  11. MAGNESIUM [Concomitant]
     Indication: ASTHENIA
  12. BIOTIN [Concomitant]
     Indication: ROUTINE HEALTH MAINTENANCE
     Dosage: UNK
  13. BIOTIN [Concomitant]
     Indication: ASTHENIA
  14. VITAMIN B [Concomitant]
     Indication: ROUTINE HEALTH MAINTENANCE
     Dosage: UNK
  15. VITAMIN B [Concomitant]
     Indication: ASTHENIA
  16. VITAMIN C [Concomitant]
     Indication: ROUTINE HEALTH MAINTENANCE
     Dosage: UNK
  17. VITAMIN C [Concomitant]
     Indication: ASTHENIA
  18. VITAMIN E [Concomitant]
     Indication: ROUTINE HEALTH MAINTENANCE
     Dosage: UNK
  19. VITAMIN E [Concomitant]
     Indication: ASTHENIA

REACTIONS (3)
  - Headache [Not Recovered/Not Resolved]
  - Weight increased [Unknown]
  - Drug ineffective [Unknown]
